FAERS Safety Report 17994532 (Version 1)
Quarter: 2020Q3

REPORT INFORMATION
  Report Type: Spontaneous
  Country: FR (occurrence: FR)
  Receive Date: 20200708
  Receipt Date: 20200708
  Transmission Date: 20201103
  Serious: Yes (Death, Other)
  Sender: FDA-Public Use
  Company Number: FR-MYLANLABS-2020M1061648

PATIENT
  Age: 58 Year
  Sex: Male

DRUGS (9)
  1. CISPLATIN. [Suspect]
     Active Substance: CISPLATIN
     Indication: LUNG NEOPLASM MALIGNANT
     Dosage: UNK UNK, CYCLE
     Route: 065
  2. CISPLATIN. [Suspect]
     Active Substance: CISPLATIN
     Indication: TRACHEAL CANCER
  3. ETOPOSIDE. [Suspect]
     Active Substance: ETOPOSIDE
     Indication: TRACHEAL CANCER
  4. CISPLATIN. [Suspect]
     Active Substance: CISPLATIN
     Indication: BRONCHIAL CARCINOMA
  5. CARBOPLATIN. [Suspect]
     Active Substance: CARBOPLATIN
     Indication: LUNG NEOPLASM MALIGNANT
     Dosage: UNK, CYCLE
     Route: 042
  6. CARBOPLATIN. [Suspect]
     Active Substance: CARBOPLATIN
     Indication: BRONCHIAL CARCINOMA
  7. ETOPOSIDE. [Suspect]
     Active Substance: ETOPOSIDE
     Indication: LUNG NEOPLASM MALIGNANT
     Dosage: UNK UNK, CYCLE
     Route: 042
  8. CARBOPLATIN. [Suspect]
     Active Substance: CARBOPLATIN
     Indication: TRACHEAL CANCER
  9. ETOPOSIDE. [Suspect]
     Active Substance: ETOPOSIDE
     Indication: BRONCHIAL CARCINOMA

REACTIONS (2)
  - Inappropriate antidiuretic hormone secretion [Unknown]
  - Progressive multifocal leukoencephalopathy [Fatal]
